FAERS Safety Report 10766730 (Version 2)
Quarter: 2015Q1

REPORT INFORMATION
  Report Type: Spontaneous
  Country: US (occurrence: US)
  Receive Date: 20150205
  Receipt Date: 20150302
  Transmission Date: 20150721
  Serious: Yes (Death, Hospitalization, Other)
  Sender: FDA-Public Use
  Company Number: PHEH2015US002231

PATIENT
  Sex: Female
  Weight: 11.5 kg

DRUGS (4)
  1. VITAMIN D [Concomitant]
     Active Substance: CHOLECALCIFEROL
     Indication: PRODUCT USED FOR UNKNOWN INDICATION
     Route: 048
  2. EXJADE [Suspect]
     Active Substance: DEFERASIROX
     Indication: THALASSAEMIA BETA
     Dosage: 250 MG AND 375 MG AN ALTERNATING DAYS
     Route: 048
     Dates: start: 201402
  3. MVI                                /01825701/ [Concomitant]
     Indication: PRODUCT USED FOR UNKNOWN INDICATION
     Route: 048
  4. FOLIC ACID. [Concomitant]
     Active Substance: FOLIC ACID
     Indication: PRODUCT USED FOR UNKNOWN INDICATION
     Route: 065

REACTIONS (12)
  - Renal failure [Fatal]
  - Respiratory syncytial virus test positive [Unknown]
  - Fatigue [Unknown]
  - Upper respiratory tract infection [Unknown]
  - Pyrexia [Unknown]
  - Hepatic enzyme increased [Fatal]
  - Acidosis [Unknown]
  - Rhinorrhoea [Unknown]
  - Ammonia increased [Unknown]
  - Lethargy [Unknown]
  - Brain herniation [Unknown]
  - Hepatic failure [Fatal]
